FAERS Safety Report 7751356-3 (Version None)
Quarter: 2011Q3

REPORT INFORMATION
  Report Type: 
  Country: None (occurrence: None)
  Receive Date: 20110914
  Receipt Date: 20110912
  Transmission Date: 20111222
  Serious: Yes (Other)
  Sender: FDA-Public Use
  Company Number: US-BAYER-2011-084620

PATIENT
  Sex: Male

DRUGS (1)
  1. MAGNEVIST [Suspect]
     Indication: NUCLEAR MAGNETIC RESONANCE IMAGING
     Dosage: UNK
     Dates: start: 20100801, end: 20100801

REACTIONS (6)
  - OCULAR ICTERUS [None]
  - BACK PAIN [None]
  - ACNE [None]
  - WOUND HAEMORRHAGE [None]
  - RENAL PAIN [None]
  - PRURITUS [None]
